FAERS Safety Report 21194186 (Version 1)
Quarter: 2022Q3

REPORT INFORMATION
  Report Type: Spontaneous
  Country: GB (occurrence: GB)
  Receive Date: 20220810
  Receipt Date: 20220810
  Transmission Date: 20221026
  Serious: Yes (Other)
  Sender: FDA-Public Use
  Company Number: None

PATIENT
  Sex: Female

DRUGS (2)
  1. LOSARTAN [Suspect]
     Active Substance: LOSARTAN
     Dosage: REDUCE TO 50 MG A DAY
  2. AMLODIPINE [Concomitant]
     Active Substance: AMLODIPINE BESYLATE

REACTIONS (7)
  - Trichorrhexis [Unknown]
  - Alopecia [Unknown]
  - Chromaturia [Unknown]
  - Weight decreased [Unknown]
  - Epistaxis [Unknown]
  - Hypertension [Unknown]
  - Hypotension [Unknown]
